FAERS Safety Report 7083450-7 (Version None)
Quarter: 2010Q4

REPORT INFORMATION
  Report Type: 
  Country: None (occurrence: None)
  Receive Date: 20101104
  Receipt Date: 20101026
  Transmission Date: 20110411
  Serious: No
  Sender: FDA-Public Use
  Company Number: B0675730A

PATIENT
  Sex: Male

DRUGS (12)
  1. LAMICTAL [Suspect]
     Indication: EPILEPSY
     Dosage: 400MG PER DAY
     Route: 048
     Dates: start: 20100122, end: 20100904
  2. TEGRETOL [Concomitant]
     Indication: EPILEPSY
     Dosage: 900MG PER DAY
     Route: 048
  3. ALEVIATIN [Concomitant]
     Indication: EPILEPSY
     Dosage: 270MG PER DAY
     Route: 048
  4. MYSTAN [Concomitant]
     Indication: EPILEPSY
     Dosage: 40MG PER DAY
     Route: 048
  5. RIVOTRIL [Concomitant]
     Indication: EPILEPSY
     Dosage: 3MG PER DAY
     Route: 048
  6. DIAZEPAM [Concomitant]
     Indication: EPILEPSY
     Dosage: 12MG PER DAY
     Route: 048
  7. DOMPERIDONE [Concomitant]
     Indication: EPILEPTIC PSYCHOSIS
     Dosage: 18MG PER DAY
     Route: 048
  8. LULLAN [Concomitant]
     Indication: EPILEPTIC PSYCHOSIS
     Dosage: 24MG PER DAY
     Route: 048
  9. AKINETON [Concomitant]
     Indication: PARKINSONISM
     Dosage: 3MG PER DAY
     Route: 048
  10. GASMOTIN [Concomitant]
     Indication: CONSTIPATION
     Dosage: 9MG PER DAY
     Route: 048
  11. CONTOMIN [Concomitant]
     Indication: INSOMNIA
     Dosage: 25MG PER DAY
     Route: 048
  12. BENZALIN [Concomitant]
     Indication: INSOMNIA
     Dosage: 15MG PER DAY
     Route: 048

REACTIONS (9)
  - CONJUNCTIVITIS ALLERGIC [None]
  - DRUG ERUPTION [None]
  - ERYTHEMA [None]
  - EYE PRURITUS [None]
  - HYPOAESTHESIA [None]
  - INSOMNIA [None]
  - OCULAR HYPERAEMIA [None]
  - PRURITUS GENERALISED [None]
  - RASH [None]
